FAERS Safety Report 5960915-X (Version None)
Quarter: 2008Q4

REPORT INFORMATION
  Report Type: 
  Country: None (occurrence: None)
  Receive Date: 20081121
  Receipt Date: 20081118
  Transmission Date: 20090506
  Serious: Yes (Other)
  Sender: FDA-Public Use
  Company Number: US-JNJFOC-20081002438

PATIENT
  Sex: Female
  Weight: 68.95 kg

DRUGS (3)
  1. CONCERTA [Suspect]
     Indication: ATTENTION DEFICIT/HYPERACTIVITY DISORDER
     Route: 048
  2. PROZAC [Concomitant]
     Indication: ANXIETY
     Route: 048
  3. PROZAC [Concomitant]
     Indication: DEPRESSION
     Route: 048

REACTIONS (1)
  - SUICIDAL IDEATION [None]
